FAERS Safety Report 8002138-9 (Version None)
Quarter: 2011Q4

REPORT INFORMATION
  Report Type: 
  Country: None (occurrence: None)
  Receive Date: 20111222
  Receipt Date: 20111213
  Transmission Date: 20120403
  Serious: Yes (Other)
  Sender: FDA-Public Use
  Company Number: US-CELGENEUS-163-21880-11052293

PATIENT
  Sex: Male

DRUGS (9)
  1. REVLIMID [Suspect]
     Indication: MULTIPLE MYELOMA
     Dosage: 15 MILLIGRAM
     Route: 048
     Dates: start: 20100707, end: 20110301
  2. CALCIUM [Concomitant]
     Route: 065
  3. LOVAZA [Concomitant]
     Route: 065
  4. MS CONTIN [Concomitant]
     Dosage: 60 MILLIGRAM
     Route: 065
  5. MULTI-VITAMINS [Concomitant]
     Route: 065
  6. REVLIMID [Suspect]
     Dosage: 5 MILLIGRAM
     Route: 048
     Dates: start: 20111001
  7. MS CONTIN [Concomitant]
     Indication: BREAKTHROUGH PAIN
     Dosage: 90 MILLIGRAM
     Route: 065
  8. VITAMIN D [Concomitant]
     Route: 065
  9. COLACE [Concomitant]
     Dosage: 3
     Route: 048

REACTIONS (5)
  - ASTHENIA [None]
  - OSTEONECROSIS [None]
  - ORAL INFECTION [None]
  - WEIGHT DECREASED [None]
  - FATIGUE [None]
